FAERS Safety Report 22042003 (Version 2)
Quarter: 2023Q1

REPORT INFORMATION
  Report Type: Other
  Country: None (occurrence: PL)
  Receive Date: 20230227
  Receipt Date: 20230312
  Transmission Date: 20230418
  Serious: Yes (Hospitalization)
  Sender: FDA-Public Use
  Company Number: PL-B.Braun Medical Inc.-2138499

PATIENT
  Age: 68 Year
  Sex: Male

DRUGS (4)
  1. METRONIDAZOLE [Suspect]
     Active Substance: METRONIDAZOLE
     Route: 042
  2. AMOXICILLIN\CLAVULANIC ACID [Suspect]
     Active Substance: AMOXICILLIN\CLAVULANIC ACID
  3. FLUCONAZOLE [Suspect]
     Active Substance: FLUCONAZOLE
  4. AMIKACIN [Suspect]
     Active Substance: AMIKACIN

REACTIONS (10)
  - Coagulopathy [Recovering/Resolving]
  - Cardiovascular insufficiency [Recovering/Resolving]
  - Respiratory failure [Recovering/Resolving]
  - Anaemia [Recovering/Resolving]
  - Drug ineffective [Recovering/Resolving]
  - Acute kidney injury [Recovering/Resolving]
  - Coagulopathy [Recovering/Resolving]
  - Candida infection [Recovering/Resolving]
  - Septic shock [Recovering/Resolving]
  - Inflammation [Recovering/Resolving]
